FAERS Safety Report 8406922-9 (Version None)
Quarter: 2012Q2

REPORT INFORMATION
  Report Type: 
  Country: None (occurrence: None)
  Receive Date: 20120604
  Receipt Date: 20120504
  Transmission Date: 20120825
  Serious: No
  Sender: FDA-Public Use
  Company Number: US-JNJFOC-20120508247

PATIENT
  Age: 28 Year
  Sex: Female

DRUGS (3)
  1. RISPERDAL [Suspect]
     Indication: BIPOLAR DISORDER
     Route: 048
     Dates: start: 20120101, end: 20120101
  2. INVEGA SUSTENNA [Suspect]
     Route: 030
     Dates: start: 20120401, end: 20120401
  3. INVEGA SUSTENNA [Suspect]
     Indication: BIPOLAR DISORDER
     Route: 030
     Dates: start: 20120406, end: 20120406

REACTIONS (6)
  - AKATHISIA [None]
  - MUSCULOSKELETAL STIFFNESS [None]
  - ANXIETY [None]
  - MOBILITY DECREASED [None]
  - MUSCLE RIGIDITY [None]
  - RESTLESSNESS [None]
